FAERS Safety Report 26207725 (Version 1)
Quarter: 2025Q4

REPORT INFORMATION
  Report Type: Spontaneous
  Country: EU (occurrence: EU)
  Receive Date: 20251229
  Receipt Date: 20251229
  Transmission Date: 20260118
  Serious: Yes (Other)
  Sender: TEVA
  Company Number: None

PATIENT
  Age: 2 Year
  Sex: Female
  Weight: 22 kg

DRUGS (1)
  1. MELOXICAM [Suspect]
     Active Substance: MELOXICAM
     Indication: Bronchial obstruction
     Dosage: 1 SACHET OF 4 MG GRANULES EVERY EVENING
     Route: 048
     Dates: start: 2022, end: 20241228

REACTIONS (7)
  - Aggression [Unknown]
  - Urinary incontinence [Recovered/Resolved with Sequelae]
  - Nightmare [Recovered/Resolved]
  - Disorientation [Recovered/Resolved]
  - Screaming [Recovered/Resolved]
  - Irritability [Unknown]
  - Urinary tract infection [Recovered/Resolved with Sequelae]

NARRATIVE: CASE EVENT DATE: 20220101
